FAERS Safety Report 4594412-3 (Version None)
Quarter: 2005Q1

REPORT INFORMATION
  Report Type: 
  Country: None (occurrence: None)
  Receive Date: 20050301
  Receipt Date: 20040120
  Transmission Date: 20050727
  Serious: No
  Sender: FDA-Public Use
  Company Number: US-GLAXOSMITHKLINE-A0494231A

PATIENT
  Age: 35 Year
  Sex: Female

DRUGS (2)
  1. VALTREX [Suspect]
     Dosage: 4 PER DAY
     Route: 048
     Dates: start: 20040112, end: 20040114
  2. DENAVIR [Concomitant]

REACTIONS (1)
  - RASH [None]
